FAERS Safety Report 7350290-0 (Version None)
Quarter: 2011Q1

REPORT INFORMATION
  Report Type: 
  Country: None (occurrence: None)
  Receive Date: 20110314
  Receipt Date: 20110304
  Transmission Date: 20110831
  Serious: Yes (Other)
  Sender: FDA-Public Use
  Company Number: US-ELI_LILLY_AND_COMPANY-US201103002085

PATIENT
  Sex: Female

DRUGS (3)
  1. TYLENOL [Concomitant]
     Dosage: UNK, UNKNOWN
  2. CYMBALTA [Suspect]
     Indication: DIABETIC NEUROPATHY
     Dosage: 60 MG, UNKNOWN
  3. TYLENOL [Concomitant]
     Dosage: UNK, UNKNOWN

REACTIONS (2)
  - AUTOIMMUNE DISORDER [None]
  - HEPATIC ENZYME INCREASED [None]
